FAERS Safety Report 5711265-8 (Version None)
Quarter: 2008Q2

REPORT INFORMATION
  Report Type: 
  Country: None (occurrence: None)
  Receive Date: 20080418
  Receipt Date: 20080411
  Transmission Date: 20081010
  Serious: Yes (Hospitalization, Other)
  Sender: FDA-Public Use
  Company Number: 19035

PATIENT
  Age: 70 Year
  Sex: Male

DRUGS (5)
  1. METHOTREXATE [Suspect]
     Indication: RHEUMATOID ARTHRITIS
     Dosage: 15 MG WEEKLY
     Dates: end: 20040201
  2. PREDNISONE [Suspect]
     Indication: RHEUMATOID ARTHRITIS
     Dosage: 10 MG DAILY
  3. PREDNISONE [Suspect]
     Indication: RHEUMATOID ARTHRITIS
     Dosage: 5 MG DAILY
     Dates: start: 20040401
  4. VANCOMYCIN [Concomitant]
  5. CIPROFLOXACIN [Concomitant]

REACTIONS (11)
  - ARTHRALGIA [None]
  - CULTURE POSITIVE [None]
  - HAND DEFORMITY [None]
  - IMPAIRED HEALING [None]
  - INCISION SITE ERYTHEMA [None]
  - INCISION SITE PAIN [None]
  - JOINT SWELLING [None]
  - NIGHT SWEATS [None]
  - OSTEONECROSIS [None]
  - TUBERCULOSIS [None]
  - WOUND SECRETION [None]
